FAERS Safety Report 16361988 (Version 1)
Quarter: 2019Q2

REPORT INFORMATION
  Report Type: Report from Study
  Country: IT (occurrence: IT)
  Receive Date: 20190528
  Receipt Date: 20190528
  Transmission Date: 20190711
  Serious: Yes (Other)
  Sender: FDA-Public Use
  Company Number: IT-PFIZER INC-2019219447

PATIENT
  Age: 28 Year
  Sex: Female

DRUGS (3)
  1. FLUOXETINE HYDROCHLORIDE. [Suspect]
     Active Substance: FLUOXETINE HYDROCHLORIDE
     Dosage: 40 MG, TOTAL
     Route: 048
     Dates: start: 20190112, end: 20190112
  2. FELISON [Suspect]
     Active Substance: FLURAZEPAM MONOHYDROCHLORIDE
     Dosage: 28 DF, TOTAL
     Route: 048
     Dates: start: 20190112, end: 20190112
  3. HALCION [Suspect]
     Active Substance: TRIAZOLAM
     Dosage: 18 DF, TOTAL
     Route: 048
     Dates: start: 20190112, end: 20190112

REACTIONS (3)
  - Mental impairment [Recovering/Resolving]
  - Drug abuse [Unknown]
  - Hypokinesia [Recovering/Resolving]

NARRATIVE: CASE EVENT DATE: 20190112
